FAERS Safety Report 6082576-4 (Version None)
Quarter: 2009Q1

REPORT INFORMATION
  Report Type: 
  Country: None (occurrence: None)
  Receive Date: 20090218
  Receipt Date: 20090206
  Transmission Date: 20090719
  Serious: Yes (Other)
  Sender: FDA-Public Use
  Company Number: ZA-PFIZER INC-2009166926

PATIENT

DRUGS (1)
  1. SUTENT [Suspect]
     Indication: RENAL CELL CARCINOMA
     Dosage: 50 MG, 1X/DAY
     Route: 048
     Dates: start: 20081217, end: 20090105

REACTIONS (5)
  - DIARRHOEA [None]
  - HAEMATEMESIS [None]
  - HAEMOPTYSIS [None]
  - HYPERTENSION [None]
  - MUCOSAL INFLAMMATION [None]
